FAERS Safety Report 23491635 (Version 5)
Quarter: 2024Q4

REPORT INFORMATION
  Report Type: Spontaneous
  Country: US (occurrence: US)
  Receive Date: 20240207
  Receipt Date: 20241106
  Transmission Date: 20250115
  Serious: Yes (Other)
  Sender: BRISTOL-MYERS SQUIBB COMPANY
  Company Number: US-BRISTOL-MYERS SQUIBB COMPANY-2024-019414

PATIENT
  Age: 75 Year
  Sex: Female
  Weight: 45.36 kg

DRUGS (3)
  1. REVLIMID [Suspect]
     Active Substance: LENALIDOMIDE
     Indication: Plasma cell myeloma
     Dosage: DAILY FOR 21DAYS/DAILY FOR 21 DAYS ON, THEN 7 DAYS OFF
     Route: 048
     Dates: start: 20230808
  2. REVLIMID [Suspect]
     Active Substance: LENALIDOMIDE
     Dosage: DAILY FOR 21DAYS/DAILY FOR 21 DAYS ON, THEN 7 DAYS OFF
     Route: 048
  3. REVLIMID [Suspect]
     Active Substance: LENALIDOMIDE
     Dosage: 3 WEEKS ON 1 WEEK OFF
     Route: 048

REACTIONS (15)
  - Neuropathy peripheral [Unknown]
  - Dyspepsia [Unknown]
  - Arthralgia [Unknown]
  - Constipation [Unknown]
  - Abdominal pain upper [Unknown]
  - Malaise [Recovering/Resolving]
  - Nausea [Recovering/Resolving]
  - Asthenia [Recovering/Resolving]
  - Weight decreased [Recovering/Resolving]
  - Decreased appetite [Recovering/Resolving]
  - Ageusia [Recovering/Resolving]
  - Faeces soft [Recovering/Resolving]
  - Bronchitis [Recovering/Resolving]
  - Defaecation urgency [Recovering/Resolving]
  - Weight gain poor [Unknown]

NARRATIVE: CASE EVENT DATE: 20240901
